FAERS Safety Report 24014254 (Version 5)
Quarter: 2025Q1

REPORT INFORMATION
  Report Type: Spontaneous
  Country: US (occurrence: US)
  Receive Date: 20240626
  Receipt Date: 20250107
  Transmission Date: 20250409
  Serious: Yes (Hospitalization, Other)
  Sender: Kenvue
  Company Number: US-JNJFOC-20240649787

PATIENT
  Age: 0 Year
  Sex: Female
  Weight: 2.44 kg

DRUGS (8)
  1. BENADRYL [Suspect]
     Active Substance: DIPHENHYDRAMINE HYDROCHLORIDE
     Indication: Migraine
     Route: 064
  2. CEFIXIME [Suspect]
     Active Substance: CEFIXIME
     Indication: Migraine
     Route: 064
     Dates: start: 20240416
  3. NURTEC ODT [Suspect]
     Active Substance: RIMEGEPANT SULFATE
     Indication: Migraine
     Route: 064
     Dates: start: 2023
  4. REGLAN [Suspect]
     Active Substance: METOCLOPRAMIDE HYDROCHLORIDE
     Indication: Migraine
     Route: 064
     Dates: start: 20240501
  5. ZOLOFT [Concomitant]
     Active Substance: SERTRALINE HYDROCHLORIDE
     Indication: Anxiety
     Route: 064
     Dates: start: 202301
  6. ASPIRIN [Concomitant]
     Active Substance: ASPIRIN
     Indication: Pre-eclampsia
     Route: 064
     Dates: start: 20240318, end: 20240829
  7. LASIX [Concomitant]
     Active Substance: FUROSEMIDE
     Indication: Ventricular septal defect
     Route: 065
  8. LASIX [Concomitant]
     Active Substance: FUROSEMIDE
     Indication: Atrial septal defect repair

REACTIONS (3)
  - Premature baby [Not Recovered/Not Resolved]
  - Abnormal cord insertion [Recovered/Resolved]
  - Foetal exposure during pregnancy [Unknown]

NARRATIVE: CASE EVENT DATE: 20240415
